FAERS Safety Report 23877692 (Version 3)
Quarter: 2024Q2

REPORT INFORMATION
  Report Type: Other
  Country: US (occurrence: None)
  Receive Date: 20240521
  Receipt Date: 20240606
  Transmission Date: 20240715
  Serious: No
  Sender: FDA-Public Use
  Company Number: US-ROCHE-3564980

PATIENT
  Age: 29 Year
  Sex: Female

DRUGS (1)
  1. OCREVUS [Suspect]
     Active Substance: OCRELIZUMAB
     Indication: Multiple sclerosis
     Route: 065
     Dates: start: 20240104

REACTIONS (4)
  - Eczema [Recovering/Resolving]
  - COVID-19 [Recovered/Resolved]
  - Genital ulceration [Recovered/Resolved]
  - Vulvovaginal inflammation [Unknown]

NARRATIVE: CASE EVENT DATE: 20240104
